FAERS Safety Report 5965337-3 (Version None)
Quarter: 2008Q4

REPORT INFORMATION
  Report Type: 
  Country: None (occurrence: None)
  Receive Date: 20081118
  Receipt Date: 20081103
  Transmission Date: 20090506
  Serious: Yes (Other)
  Sender: FDA-Public Use
  Company Number: ADR2522008

PATIENT
  Age: 76 Year
  Sex: Male

DRUGS (6)
  1. SIMVASTATIN [Suspect]
     Indication: CORONARY ARTERY DISEASE
     Dosage: 10 MG, ORAL
     Route: 048
  2. BELOC SOK MITE (METOPROLOL) [Concomitant]
  3. ASPIRIN [Concomitant]
  4. MIRTAZAPINE [Concomitant]
  5. FINASTERIDE [Concomitant]
  6. AORTOCORONARY VENOUS BYPASS [Concomitant]

REACTIONS (8)
  - ANGIOEDEMA [None]
  - ANXIETY [None]
  - ASTHENIA [None]
  - LARYNGEAL DISORDER [None]
  - MASKED FACIES [None]
  - MUSCULAR WEAKNESS [None]
  - SLEEP DISORDER [None]
  - SPEECH DISORDER [None]
